FAERS Safety Report 6788794-1 (Version None)
Quarter: 2010Q2

REPORT INFORMATION
  Report Type: 
  Country: None (occurrence: None)
  Receive Date: 20100623
  Receipt Date: 20080521
  Transmission Date: 20101027
  Serious: No
  Sender: FDA-Public Use
  Company Number: US-PFIZER INC-2008044050

PATIENT
  Sex: Female

DRUGS (4)
  1. GEODON [Suspect]
     Indication: SCHIZOPHRENIA
  2. GEODON [Suspect]
     Indication: BIPOLAR DISORDER
  3. FLURAZEPAM [Concomitant]
  4. LORAZEPAM [Concomitant]

REACTIONS (1)
  - INSOMNIA [None]
